FAERS Safety Report 6753032-2 (Version None)
Quarter: 2010Q2

REPORT INFORMATION
  Report Type: 
  Country: None (occurrence: None)
  Receive Date: 20100603
  Receipt Date: 20100526
  Transmission Date: 20101027
  Serious: Yes (Other)
  Sender: FDA-Public Use
  Company Number: FI-JNJFOC-20100510297

PATIENT
  Age: 49 Year
  Weight: 80 kg

DRUGS (4)
  1. REMICADE [Suspect]
     Indication: PSORIATIC ARTHROPATHY
     Route: 042
  2. REMICADE [Suspect]
     Route: 042
  3. METHOTREXATE [Concomitant]
     Indication: PSORIATIC ARTHROPATHY
  4. FOLIC ACID [Concomitant]

REACTIONS (5)
  - ALANINE AMINOTRANSFERASE INCREASED [None]
  - BLOOD CHOLESTEROL INCREASED [None]
  - GAMMA-GLUTAMYLTRANSFERASE INCREASED [None]
  - HIGH DENSITY LIPOPROTEIN DECREASED [None]
  - HYPERTRIGLYCERIDAEMIA [None]
